FAERS Safety Report 23952388 (Version 9)
Quarter: 2025Q1

REPORT INFORMATION
  Report Type: Report from Study
  Country: CN (occurrence: CN)
  Receive Date: 20240607
  Receipt Date: 20250314
  Transmission Date: 20250409
  Serious: Yes (Other)
  Sender: PFIZER
  Company Number: CN-TAKEDA-2023TUS079447

PATIENT
  Age: 30 Year
  Sex: Male
  Weight: 75 kg

DRUGS (19)
  1. ADCETRIS [Suspect]
     Active Substance: BRENTUXIMAB VEDOTIN
     Indication: Hodgkin^s disease
     Route: 041
     Dates: start: 20230609
  2. DOXORUBICIN [Suspect]
     Active Substance: DOXORUBICIN
     Indication: Hodgkin^s disease
     Dosage: 50 MILLIGRAM, QD
     Route: 042
     Dates: start: 20230609, end: 20230609
  3. VINCRISTINE SULFATE [Suspect]
     Active Substance: VINCRISTINE SULFATE
     Indication: Hodgkin^s disease
     Dosage: 2 MILLIGRAM, QD
     Route: 042
     Dates: start: 20230609, end: 20230609
  4. DACARBAZINE [Suspect]
     Active Substance: DACARBAZINE
     Indication: Hodgkin^s disease
     Dosage: 0.748 GRAM, QD
     Route: 042
     Dates: start: 20230609, end: 20230609
  5. ALLOPURINOL [Concomitant]
     Active Substance: ALLOPURINOL
     Indication: Blood uric acid increased
     Dosage: 0.1 GRAM, QD
     Route: 048
     Dates: start: 20230604, end: 20230609
  6. SODIUM BICARBONATE [Concomitant]
     Active Substance: SODIUM BICARBONATE
     Indication: Blood uric acid increased
     Dosage: 125 MILLILITER, QD
     Route: 042
     Dates: start: 20230603, end: 20230609
  7. REBAMIPIDE [Concomitant]
     Active Substance: REBAMIPIDE
     Indication: Prophylaxis
     Dosage: 0.1 GRAM, TID
     Route: 048
     Dates: start: 20230603, end: 20230609
  8. CEFOPERAZONE [CEFOPERAZONE SODIUM] [Concomitant]
     Indication: Pyrexia
     Dosage: 3 GRAM, BID
     Route: 042
     Dates: start: 20230604, end: 20230612
  9. SODIUM CHLORIDE [Concomitant]
     Active Substance: SODIUM CHLORIDE
     Indication: Fluid replacement
     Dosage: 500 MILLILITER, QD
     Route: 042
     Dates: start: 20230604, end: 20230609
  10. ALBUMIN HUMAN [Concomitant]
     Active Substance: ALBUMIN HUMAN
     Indication: Supplementation therapy
     Dosage: 10 GRAM, QD
     Route: 042
     Dates: start: 20230605, end: 20230609
  11. FOLIC ACID [Concomitant]
     Active Substance: FOLIC ACID
     Indication: Prophylaxis
     Dosage: 5 MILLIGRAM, TID
     Route: 048
     Dates: start: 20230606, end: 20230618
  12. METHYLCOBALAMIN [Concomitant]
     Active Substance: METHYLCOBALAMIN
     Indication: Haemoglobin decreased
     Dosage: 0.5 MILLIGRAM, TID
     Route: 048
     Dates: start: 20230606, end: 20230618
  13. DEXAMETHASONE SODIUM PHOSPHATE EIPICO [Concomitant]
     Indication: Lymphoma
     Dosage: 5 MILLIGRAM, QD
     Route: 042
     Dates: start: 20230606, end: 20230609
  14. WATER FOR INJECTION DENOLIN [Concomitant]
     Indication: Premedication
     Dosage: 20 MILLILITER, QD
     Route: 042
     Dates: start: 20230609, end: 20230609
  15. DIPHENHYDRAMINE HYDROCHLORIDE [Concomitant]
     Active Substance: DIPHENHYDRAMINE HYDROCHLORIDE
     Indication: Allergy prophylaxis
     Dosage: 20 MILLIGRAM, QD
     Route: 030
     Dates: start: 20230609, end: 20230609
  16. MAGNESIUM ISOGLYCYRRHIZINATE [Concomitant]
     Active Substance: MAGNESIUM ISOGLYCYRRHIZINATE
     Indication: Prophylaxis
     Dosage: 200 MILLIGRAM, QD
     Route: 042
     Dates: start: 20230609, end: 20230609
  17. PALONOSETRON HYDROCHLORIDE [Concomitant]
     Active Substance: PALONOSETRON HYDROCHLORIDE
     Indication: Prophylaxis of nausea and vomiting
     Dosage: 0.25 MILLIGRAM, QD
     Route: 042
     Dates: start: 20230609, end: 20230609
  18. FUROSEMIDE [Concomitant]
     Active Substance: FUROSEMIDE
     Indication: Polyuria
     Route: 042
     Dates: start: 20230609, end: 20230609
  19. SODIUM CHLORIDE [Concomitant]
     Active Substance: SODIUM CHLORIDE
     Indication: Supplementation therapy
     Dosage: 10 MILLILITER, QD
     Route: 042
     Dates: start: 20230606, end: 20230609

REACTIONS (13)
  - Hypokalaemia [Recovering/Resolving]
  - Neutrophil count decreased [Not Recovered/Not Resolved]
  - White blood cell count decreased [Recovered/Resolved]
  - Hyperuricaemia [Recovered/Resolved]
  - Alanine aminotransferase increased [Not Recovered/Not Resolved]
  - Bacterial infection [Not Recovered/Not Resolved]
  - Bile acids increased [Not Recovered/Not Resolved]
  - Gingivitis [Not Recovered/Not Resolved]
  - Insomnia [Not Recovered/Not Resolved]
  - Anaemia [Not Recovered/Not Resolved]
  - Pyrexia [Recovered/Resolved]
  - Dermatitis allergic [Not Recovered/Not Resolved]
  - Off label use [Unknown]

NARRATIVE: CASE EVENT DATE: 20230609
